FAERS Safety Report 10602569 (Version 1)
Quarter: 2014Q4

REPORT INFORMATION
  Report Type: Spontaneous
  Country: US (occurrence: US)
  Receive Date: 20141124
  Receipt Date: 20141124
  Transmission Date: 20150529
  Serious: Yes (Hospitalization)
  Sender: FDA-Public Use
  Company Number: US-ELI_LILLY_AND_COMPANY-US201411005996

PATIENT
  Age: 14 Year
  Sex: Female
  Weight: 36.28 kg

DRUGS (1)
  1. HUMALOG [Suspect]
     Active Substance: INSULIN LISPRO
     Indication: PRODUCT USED FOR UNKNOWN INDICATION
     Route: 058

REACTIONS (4)
  - Blood ketone body [Unknown]
  - Blood glucose increased [Unknown]
  - Blood glucose increased [Unknown]
  - Infusion site haemorrhage [Recovering/Resolving]

NARRATIVE: CASE EVENT DATE: 20141112
